FAERS Safety Report 8745602 (Version 2)
Quarter: 2013Q4

REPORT INFORMATION
  Report Type: Spontaneous
  Country: US (occurrence: US)
  Receive Date: 20120826
  Receipt Date: 20131101
  Transmission Date: 20140711
  Serious: No
  Sender: FDA-Public Use
  Company Number: US-009507513-1208USA007687

PATIENT
  Sex: Female

DRUGS (3)
  1. FOSAMAX [Suspect]
     Dosage: UNK
     Route: 048
  2. PRINIVIL [Suspect]
     Route: 048
  3. LEVOTHYROXINE SODIUM [Concomitant]

REACTIONS (1)
  - Bone density decreased [Unknown]
